FAERS Safety Report 8542462-4 (Version None)
Quarter: 2012Q3

REPORT INFORMATION
  Report Type: 
  Country: None (occurrence: None)
  Receive Date: 20120726
  Receipt Date: 20120625
  Transmission Date: 20120928
  Serious: Yes (Hospitalization)
  Sender: FDA-Public Use
  Company Number: US-ASTRAZENECA-2009SE10005

PATIENT
  Age: 37 Year
  Sex: Female
  Weight: 85.7 kg

DRUGS (5)
  1. BENZO SOMETHING TO STOP SHAKING [Concomitant]
     Route: 065
  2. HALDOL [Concomitant]
     Route: 065
  3. SEROQUEL [Suspect]
     Route: 048
  4. SEROQUEL [Suspect]
     Indication: SCHIZOPHRENIA
     Route: 048
     Dates: start: 20020101
  5. LEXAPRO [Concomitant]
     Route: 065

REACTIONS (8)
  - INTENTIONAL DRUG MISUSE [None]
  - MOOD SWINGS [None]
  - WEIGHT INCREASED [None]
  - TYPE 1 DIABETES MELLITUS [None]
  - ABNORMAL BEHAVIOUR [None]
  - INCREASED APPETITE [None]
  - AGGRESSION [None]
  - IRRITABILITY [None]
